FAERS Safety Report 7606762 (Version 2)
Quarter: 2012Q4

REPORT INFORMATION
  Report Type: 
  Country: US (occurrence: US)
  Receive Date: 20100927
  Receipt Date: 20121010
  Transmission Date: 20130627
  Serious: Yes (Hospitalization)
  Sender: FDA-Public Use
  Company Number: US-US-EMD SERONO, INC.-7018067

PATIENT
  Age: 56 None
  Sex: Female
  Weight: 59 kg

DRUGS (10)
  1. REBIF [Suspect]
     Indication: MULTIPLE SCLEROSIS
     Route: 058
     Dates: start: 20091111, end: 20100830
  2. REBIF [Suspect]
     Route: 058
  3. CYMBALTA [Concomitant]
     Indication: DEPRESSION
  4. BABY ASPIRIN [Concomitant]
     Indication: PRODUCT USED FOR UNKNOWN INDICATION
  5. CALCIUM [Concomitant]
     Indication: PRODUCT USED FOR UNKNOWN INDICATION
  6. LISINOPRIL/HCTZ [Concomitant]
     Indication: HYPERTENSION
     Dates: end: 201007
  7. LYRICA [Concomitant]
     Indication: PRODUCT USED FOR UNKNOWN INDICATION
  8. ULTRAM [Concomitant]
     Indication: PRODUCT USED FOR UNKNOWN INDICATION
  9. ZYRTEC [Concomitant]
     Indication: PRODUCT USED FOR UNKNOWN INDICATION
  10. VITAMIN D [Concomitant]
     Indication: PRODUCT USED FOR UNKNOWN INDICATION

REACTIONS (11)
  - Pancreatitis [Recovered/Resolved]
  - Intestinal ischaemia [Recovered/Resolved]
  - Polyp [Recovered/Resolved]
  - Oesophageal stenosis [Recovered/Resolved]
  - Inflammation [Recovered/Resolved]
  - Blood potassium decreased [Recovered/Resolved]
  - Burning sensation [Unknown]
  - Disturbance in attention [Unknown]
  - Crying [Unknown]
  - Hypoaesthesia [Unknown]
  - Headache [Unknown]
